FAERS Safety Report 7050412-5 (Version None)
Quarter: 2010Q4

REPORT INFORMATION
  Report Type: 
  Country: None (occurrence: None)
  Receive Date: 20101013
  Receipt Date: 20101004
  Transmission Date: 20110411
  Serious: Yes (Death, Hospitalization, Other)
  Sender: FDA-Public Use
  Company Number: 2007-02197

PATIENT
  Age: 68 Year
  Sex: Male
  Weight: 75 kg

DRUGS (4)
  1. VELCADE [Suspect]
     Indication: B-CELL LYMPHOMA
     Dosage: 2.90 MG, INTRAVENOUS ; 2.70 MG, INTRAVENOUS
     Route: 042
     Dates: start: 20070105, end: 20070524
  2. VELCADE [Suspect]
     Indication: B-CELL LYMPHOMA
     Dosage: 2.90 MG, INTRAVENOUS ; 2.70 MG, INTRAVENOUS
     Route: 042
     Dates: end: 20070524
  3. METHYLPREDNISOLONE [Concomitant]
  4. FLUCONAZOLE [Concomitant]

REACTIONS (33)
  - APLASTIC ANAEMIA [None]
  - ASCITES [None]
  - B-CELL LYMPHOMA [None]
  - CELL DEATH [None]
  - CHOLANGITIS [None]
  - CHOLECYSTITIS CHRONIC [None]
  - CHOLESTASIS [None]
  - COAGULATION FACTOR V LEVEL DECREASED [None]
  - COAGULOPATHY [None]
  - CYTOMEGALOVIRUS INFECTION [None]
  - DRUG INEFFECTIVE [None]
  - ESCHERICHIA SEPSIS [None]
  - HAEMODIALYSIS [None]
  - HAEMODYNAMIC INSTABILITY [None]
  - HAEMORRHAGE [None]
  - HEPATIC FAILURE [None]
  - HISTIOCYTOSIS HAEMATOPHAGIC [None]
  - HYPERCOAGULATION [None]
  - HYPERTRIGLYCERIDAEMIA [None]
  - HYPONATRAEMIA [None]
  - HYPOTENSION [None]
  - LARYNGEAL OBSTRUCTION [None]
  - LYMPHADENOPATHY [None]
  - MALIGNANT NEOPLASM PROGRESSION [None]
  - MUSCLE HAEMORRHAGE [None]
  - PLEURAL EFFUSION [None]
  - PSEUDOMONAL SEPSIS [None]
  - RENAL FAILURE ACUTE [None]
  - RENAL FAILURE CHRONIC [None]
  - RETROPERITONEAL LYMPHADENOPATHY [None]
  - SEPTIC SHOCK [None]
  - SERUM FERRITIN INCREASED [None]
  - THROMBOCYTOPENIA [None]
